FAERS Safety Report 19656783 (Version 1)
Quarter: 2021Q3

REPORT INFORMATION
  Report Type: Spontaneous
  Country: US (occurrence: US)
  Receive Date: 20210802
  Receipt Date: 20210802
  Transmission Date: 20211014
  Serious: Yes (Other)
  Sender: FDA-Public Use
  Company Number: None

PATIENT
  Age: 67 Year
  Sex: Female
  Weight: 111.13 kg

DRUGS (13)
  1. LISINOPRIL 20MG TABLET [Suspect]
     Active Substance: LISINOPRIL
     Indication: BLOOD PRESSURE MEASUREMENT
     Dosage: ?          QUANTITY:1 DF DOSAGE FORM;OTHER FREQUENCY:MORNING ONLY;?
     Route: 048
     Dates: start: 202103
  2. BIOTIN [Concomitant]
     Active Substance: BIOTIN
  3. BUMEX [Concomitant]
     Active Substance: BUMETANIDE
  4. DOCUSATE SODIUM. [Concomitant]
     Active Substance: DOCUSATE SODIUM
  5. GLIPIZIDE ER [Concomitant]
     Active Substance: GLIPIZIDE
  6. METFORMIN [Concomitant]
     Active Substance: METFORMIN HYDROCHLORIDE
  7. ABILIFY [Concomitant]
     Active Substance: ARIPIPRAZOLE
  8. GNP MELATONIN [Concomitant]
  9. METROPOLOL [Concomitant]
     Active Substance: METOPROLOL
  10. SYNTHROID [Concomitant]
     Active Substance: LEVOTHYROXINE SODIUM
  11. PRIMAL LABS GLUCO BURN [Concomitant]
  12. GENTEAL TEARS (MILD) [Concomitant]
     Active Substance: DEXTRAN 70\HYPROMELLOSE 2910 (4000 MPA.S)
  13. PHARBETOL [Concomitant]
     Active Substance: ACETAMINOPHEN

REACTIONS (7)
  - Cough [None]
  - Arthralgia [None]
  - Abdominal pain upper [None]
  - Pain in extremity [None]
  - Dizziness postural [None]
  - Musculoskeletal chest pain [None]
  - Therapy non-responder [None]
